FAERS Safety Report 5736916-3 (Version None)
Quarter: 2008Q2

REPORT INFORMATION
  Report Type: 
  Country: None (occurrence: None)
  Receive Date: 20080509
  Receipt Date: 20080429
  Transmission Date: 20081010
  Serious: Yes (Hospitalization)
  Sender: FDA-Public Use
  Company Number: DE-1165708

PATIENT
  Sex: Male

DRUGS (1)
  1. AZOPT [Suspect]
     Dosage: OPHTHALMIC
     Route: 047

REACTIONS (3)
  - AUTOIMMUNE DISORDER [None]
  - DRUG TOXICITY [None]
  - POLYNEUROPATHY [None]
